FAERS Safety Report 14322566 (Version 6)
Quarter: 2018Q1

REPORT INFORMATION
  Report Type: Report from Study
  Country: CO (occurrence: CO)
  Receive Date: 20171225
  Receipt Date: 20180105
  Transmission Date: 20180509
  Serious: Yes (Other)
  Sender: FDA-Public Use
  Company Number: PHHY2017CO193294

PATIENT
  Sex: Female
  Weight: 70 kg

DRUGS (3)
  1. DICLOFENAC [Suspect]
     Active Substance: DICLOFENAC
     Indication: PRODUCT USED FOR UNKNOWN INDICATION
     Dosage: UNK
     Route: 065
  2. VOTRIENT [Suspect]
     Active Substance: PAZOPANIB HYDROCHLORIDE
     Indication: SOFT TISSUE SARCOMA
     Dosage: 400 MG, Q12H
     Route: 048
     Dates: start: 20171116, end: 201712
  3. VOTRIENT [Suspect]
     Active Substance: PAZOPANIB HYDROCHLORIDE
     Dosage: 200 MG, TID
     Route: 048
     Dates: start: 201712

REACTIONS (11)
  - Nervous system disorder [Unknown]
  - Dyspepsia [Unknown]
  - Nausea [Unknown]
  - Pain [Unknown]
  - Depression [Unknown]
  - Diarrhoea [Unknown]
  - Fatigue [Unknown]
  - Psychiatric symptom [Unknown]
  - Feeling abnormal [Unknown]
  - Back pain [Unknown]
  - Pain in extremity [Unknown]
